FAERS Safety Report 6575842-7 (Version None)
Quarter: 2010Q1

REPORT INFORMATION
  Report Type: 
  Country: None (occurrence: None)
  Receive Date: 20100209
  Receipt Date: 20100129
  Transmission Date: 20100710
  Serious: No
  Sender: FDA-Public Use
  Company Number: US-B.I. PHARMACEUTICALS,INC./RIDGEFIELD-2010-BP-01166BP

PATIENT
  Age: 78 Year
  Sex: Male

DRUGS (3)
  1. MIRAPEX [Suspect]
     Indication: PARKINSON'S DISEASE
     Dosage: 1.5 MG
     Route: 048
     Dates: start: 20090101, end: 20100128
  2. CARBIDOPA [Concomitant]
     Indication: PARKINSON'S DISEASE
  3. COUMADIN [Concomitant]
     Indication: CARDIAC DISORDER

REACTIONS (3)
  - EXCESSIVE SEXUAL FANTASIES [None]
  - HALLUCINATION, VISUAL [None]
  - PARANOIA [None]
